FAERS Safety Report 24676562 (Version 1)
Quarter: 2024Q4

REPORT INFORMATION
  Report Type: Report from Study
  Country: US (occurrence: US)
  Receive Date: 20241128
  Receipt Date: 20241128
  Transmission Date: 20250115
  Serious: Yes (Death, Other)
  Sender: ALEXION PHARMACEUTICALS
  Company Number: US-AstraZeneca-CH-00721069A

PATIENT

DRUGS (4)
  1. TICAGRELOR [Suspect]
     Active Substance: TICAGRELOR
     Dosage: 10 MILLIGRAM, QD
  2. TICAGRELOR [Suspect]
     Active Substance: TICAGRELOR
     Dosage: 10 MILLIGRAM, QD
  3. TICAGRELOR [Suspect]
     Active Substance: TICAGRELOR
     Dosage: 10 MILLIGRAM, QD
  4. TICAGRELOR [Suspect]
     Active Substance: TICAGRELOR
     Dosage: 10 MILLIGRAM, QD

REACTIONS (1)
  - Death [Fatal]
